FAERS Safety Report 14579641 (Version 2)
Quarter: 2018Q1

REPORT INFORMATION
  Report Type: Spontaneous
  Country: JP (occurrence: JP)
  Receive Date: 20180227
  Receipt Date: 20180228
  Transmission Date: 20180509
  Serious: Yes (Death, Other)
  Sender: FDA-Public Use
  Company Number: JP-TEVA-2018-JP-861128

PATIENT
  Age: 77 Year
  Sex: Male

DRUGS (8)
  1. SODIUM FERROUS CITRATE [Concomitant]
     Active Substance: SODIUM FERROUS CITRATE
     Route: 065
  2. FAMOTIDINE. [Suspect]
     Active Substance: FAMOTIDINE
     Route: 065
  3. DEXAMETHASONE. [Suspect]
     Active Substance: DEXAMETHASONE
     Route: 065
  4. CALCIUM-CARBONATE [Concomitant]
     Active Substance: CALCIUM CARBONATE
     Route: 065
  5. LOXOPROFEN [Suspect]
     Active Substance: LOXOPROFEN
     Indication: CELLULITIS
     Route: 065
  6. CEFCAPENE PIVOXIL HYDROCHLORIDE [Suspect]
     Active Substance: CEFCAPENE PIVOXIL HYDROCHLORIDE
     Indication: CELLULITIS
     Route: 065
  7. FUROSEMIDE. [Suspect]
     Active Substance: FUROSEMIDE
     Route: 065
  8. ENZALUTAMIDE [Suspect]
     Active Substance: ENZALUTAMIDE
     Indication: HORMONE-REFRACTORY PROSTATE CANCER
     Dosage: 160MG
     Route: 048
     Dates: start: 201406

REACTIONS (3)
  - Cardio-respiratory arrest [Fatal]
  - Malaise [Unknown]
  - Seizure [Fatal]
